FAERS Safety Report 20528784 (Version 1)
Quarter: 2022Q1

REPORT INFORMATION
  Report Type: Spontaneous
  Country: US (occurrence: US)
  Receive Date: 20220228
  Receipt Date: 20220228
  Transmission Date: 20220424
  Serious: Yes (Other)
  Sender: FDA-Public Use
  Company Number: US-NOVARTISPH-NVSC2022US047838

PATIENT
  Age: 66 Year
  Sex: Male

DRUGS (2)
  1. RANITIDINE [Suspect]
     Active Substance: RANITIDINE
     Indication: Gastric ulcer
     Dosage: 150 MG  ,,DAILY,
     Route: 048
     Dates: start: 198301, end: 201301
  2. RANITIDINE [Suspect]
     Active Substance: RANITIDINE
     Indication: Gastric ulcer
     Dosage: 150 MG  ,,DAILY,
     Route: 048
     Dates: start: 198301, end: 201301

REACTIONS (3)
  - Hepatic cancer [Recovering/Resolving]
  - Skin cancer [Recovering/Resolving]
  - Incorrect dose administered [Unknown]

NARRATIVE: CASE EVENT DATE: 20130101
